FAERS Safety Report 9190648 (Version 1)
Quarter: 2013Q1

REPORT INFORMATION
  Report Type: Spontaneous
  Country: US (occurrence: None)
  Receive Date: 20120703
  Receipt Date: 20120703
  Transmission Date: 20140127
  Serious: No
  Sender: FDA-Public Use
  Company Number: PHEH2012US007173

PATIENT
  Sex: Female

DRUGS (4)
  1. GILENYA (FTY) CAPSULE, 0.5 MG [Suspect]
     Route: 048
  2. VESICARE (SOLIFENACIN) TABLET [Concomitant]
  3. AMBIEN (ZOLPIDEM TARTRATE) TABLET [Concomitant]
  4. PROVENTIL (SALBUTAMOL SULFATE) AEROSOL [Concomitant]

REACTIONS (6)
  - Memory impairment [None]
  - Disturbance in attention [None]
  - Paraesthesia [None]
  - Depression [None]
  - Fatigue [None]
  - Hypoaesthesia [None]
